FAERS Safety Report 4916450-0 (Version None)
Quarter: 2006Q1

REPORT INFORMATION
  Report Type: 
  Country: None (occurrence: None)
  Receive Date: 20060220
  Receipt Date: 20060209
  Transmission Date: 20060701
  Serious: Yes (Hospitalization, Other)
  Sender: FDA-Public Use
  Company Number: US-ABBOTT-06P-163-0324502-00

PATIENT
  Sex: Male
  Weight: 83.99 kg

DRUGS (5)
  1. DEPAKOTE [Suspect]
     Indication: BIPOLAR DISORDER
     Route: 048
     Dates: start: 20030501, end: 20041231
  2. DEPAKOTE [Suspect]
     Route: 048
     Dates: start: 20050111, end: 20050201
  3. FENOFIBRATE [Concomitant]
     Indication: BLOOD TRIGLYCERIDES INCREASED
     Route: 048
     Dates: start: 20050101
  4. LITHIUM [Concomitant]
     Indication: BIPOLAR DISORDER
     Route: 048
  5. BUSPIRONE [Concomitant]
     Indication: ANXIETY
     Route: 048

REACTIONS (3)
  - DIABETES MELLITUS [None]
  - PANCREATIC PSEUDOCYST [None]
  - PANCREATITIS [None]
